FAERS Safety Report 5246359-7 (Version None)
Quarter: 2007Q1

REPORT INFORMATION
  Report Type: 
  Country: None (occurrence: None)
  Receive Date: 20070226
  Receipt Date: 20070215
  Transmission Date: 20070707
  Serious: Yes (Other)
  Sender: FDA-Public Use
  Company Number: US-JNJFOC-20070204085

PATIENT
  Age: 82 Year
  Sex: Male

DRUGS (9)
  1. REMICADE [Suspect]
     Indication: RHEUMATOID ARTHRITIS
     Route: 042
  2. PREDNISONE [Concomitant]
  3. VICODIN [Concomitant]
  4. FOLIC ACID [Concomitant]
  5. PLENDIL [Concomitant]
  6. LEVOTHYROXINE SODIUM [Concomitant]
  7. PRILOSEC [Concomitant]
  8. MOBIC [Concomitant]
  9. ASPIRIN [Concomitant]

REACTIONS (1)
  - LUNG NEOPLASM MALIGNANT [None]
